FAERS Safety Report 17229841 (Version 2)
Quarter: 2020Q1

REPORT INFORMATION
  Report Type: Report from Study
  Country: CO (occurrence: CO)
  Receive Date: 20200103
  Receipt Date: 20200117
  Transmission Date: 20200409
  Serious: Yes (Other)
  Sender: FDA-Public Use
  Company Number: NVSC2019CO075094

PATIENT
  Sex: Female
  Weight: 46.5 kg

DRUGS (2)
  1. TYKERB [Suspect]
     Active Substance: LAPATINIB DITOSYLATE
     Indication: BREAST CANCER
     Dosage: 4 DF, QD (TABLET)
     Route: 048
     Dates: start: 201805
  2. TRASTUZUMAB. [Concomitant]
     Active Substance: TRASTUZUMAB
     Indication: BREAST CANCER
     Dosage: (EVERY 21 DAYS)
     Route: 030
     Dates: start: 2018

REACTIONS (1)
  - Hepatic cyst [Recovered/Resolved]

NARRATIVE: CASE EVENT DATE: 2018
